FAERS Safety Report 5181092-1 (Version None)
Quarter: 2006Q4

REPORT INFORMATION
  Report Type: 
  Country: None (occurrence: None)
  Receive Date: 20061220
  Receipt Date: 20061102
  Transmission Date: 20070319
  Serious: Yes (Other)
  Sender: FDA-Public Use
  Company Number: PHNU2006DE03604

PATIENT
  Sex: Female

DRUGS (3)
  1. DIOVAN [Suspect]
     Indication: HYPERTENSION
     Dosage: 80-0-80 MG/DAY
     Route: 048
     Dates: start: 20061001
  2. CYNT [Concomitant]
     Dosage: 0.2-0-0.2 MG/DAY
     Route: 048
     Dates: start: 20030101
  3. PROCOROLAN [Concomitant]

REACTIONS (4)
  - AGITATION [None]
  - ARRHYTHMIA [None]
  - EXERCISE ELECTROCARDIOGRAM ABNORMAL [None]
  - PALPITATIONS [None]
